FAERS Safety Report 22118939 (Version 2)
Quarter: 2023Q1

REPORT INFORMATION
  Report Type: Spontaneous
  Country: GB (occurrence: GB)
  Receive Date: 20230321
  Receipt Date: 20230330
  Transmission Date: 20230417
  Serious: Yes (Other)
  Sender: FDA-Public Use
  Company Number: GB-drreddys-SPO/UKI/23/0162411

PATIENT
  Age: 46 Year
  Sex: Female

DRUGS (7)
  1. PREGABALIN [Suspect]
     Active Substance: PREGABALIN
     Indication: Epilepsy
     Dates: start: 202301
  2. PREGABALIN [Suspect]
     Active Substance: PREGABALIN
     Indication: Partial seizures
  3. CLONAZEPAM [Concomitant]
     Active Substance: CLONAZEPAM
     Indication: Product used for unknown indication
     Dosage: 250-500 MCG NOCTE
  4. DIHYDROCODEINE [Concomitant]
     Active Substance: DIHYDROCODEINE
     Indication: Product used for unknown indication
  5. THYROXINE [Concomitant]
     Active Substance: LEVOTHYROXINE
     Indication: Product used for unknown indication
     Dosage: 25 MCG ID
  6. TOPIRAMATE [Concomitant]
     Active Substance: TOPIRAMATE
     Indication: Product used for unknown indication
  7. ZOMIG [Concomitant]
     Active Substance: ZOLMITRIPTAN
     Indication: Product used for unknown indication

REACTIONS (5)
  - Partial seizures [Unknown]
  - Myoclonic epilepsy [Unknown]
  - Anxiety [Unknown]
  - Musculoskeletal pain [Unknown]
  - Drug ineffective [Unknown]
